FAERS Safety Report 4724963-X (Version None)
Quarter: 2005Q3

REPORT INFORMATION
  Report Type: 
  Country: None (occurrence: None)
  Receive Date: 20050722
  Receipt Date: 20050714
  Transmission Date: 20060218
  Serious: Yes (Other)
  Sender: FDA-Public Use
  Company Number: 2005FR-00129

PATIENT
  Age: 61 Year
  Sex: Female

DRUGS (6)
  1. ASPIRIN [Suspect]
     Indication: MYOCARDIAL ISCHAEMIA
     Dosage: 75MG, OD, ORAL
     Route: 048
     Dates: end: 20050610
  2. SIMVASTATIN [Concomitant]
  3. BUMETANIDE [Concomitant]
  4. DILTIAZEM HCL [Concomitant]
  5. GLICLAZIDE [Concomitant]
  6. OMEPRAZOLE [Concomitant]

REACTIONS (10)
  - DIZZINESS [None]
  - DUODENAL ULCER [None]
  - DYSPNOEA [None]
  - EROSIVE DUODENITIS [None]
  - ERYTHEMA [None]
  - FAECES DISCOLOURED [None]
  - GASTRIC ULCER [None]
  - GASTROENTERITIS HELICOBACTER [None]
  - LETHARGY [None]
  - MUCOSAL EROSION [None]
